FAERS Safety Report 16066553 (Version 1)
Quarter: 2019Q1

REPORT INFORMATION
  Report Type: Spontaneous
  Country: TR (occurrence: TR)
  Receive Date: 20190313
  Receipt Date: 20190313
  Transmission Date: 20190418
  Serious: Yes (Other)
  Sender: FDA-Public Use
  Company Number: PHHY2019TR052689

PATIENT
  Age: 3 Month
  Sex: Female
  Weight: 5 kg

DRUGS (3)
  1. PARACETAMOL [Suspect]
     Active Substance: ACETAMINOPHEN
     Dosage: 75 MG, Q12H
     Route: 042
  2. PARACETAMOL [Suspect]
     Active Substance: ACETAMINOPHEN
     Dosage: 750 MG, Q12H
     Route: 042
  3. PARACETAMOL [Suspect]
     Active Substance: ACETAMINOPHEN
     Indication: PYREXIA
     Dosage: UNK
     Route: 048

REACTIONS (5)
  - Drug intolerance [Unknown]
  - Vomiting [Unknown]
  - Hepatotoxicity [Recovered/Resolved]
  - Toxicity to various agents [Recovered/Resolved]
  - Overdose [Recovered/Resolved]
